FAERS Safety Report 14101303 (Version 3)
Quarter: 2020Q2

REPORT INFORMATION
  Report Type: Report from Study
  Country: CN (occurrence: CN)
  Receive Date: 20171018
  Receipt Date: 20200520
  Transmission Date: 20200713
  Serious: Yes (Hospitalization)
  Sender: FDA-Public Use
  Company Number: CN-ASTRAZENECA-2017SF05556

PATIENT
  Age: 26271 Day
  Sex: Male

DRUGS (141)
  1. ATORVASTATIN CALCIUM. [Concomitant]
     Active Substance: ATORVASTATIN CALCIUM
     Indication: CORONARY ARTERY DISEASE
     Route: 048
     Dates: start: 2014
  2. CILOSTAZOL. [Concomitant]
     Active Substance: CILOSTAZOL
     Indication: HYPERTENSION
     Route: 048
     Dates: start: 20161027
  3. NIFEDIPINE. [Concomitant]
     Active Substance: NIFEDIPINE
     Indication: HYPERTENSION
     Route: 048
     Dates: start: 2015, end: 20161026
  4. NIFEDIPINE. [Concomitant]
     Active Substance: NIFEDIPINE
     Indication: HYPERTENSION
     Route: 048
     Dates: start: 20161205, end: 20170206
  5. TORASEMIDE [Concomitant]
     Active Substance: TORSEMIDE
     Indication: CORONARY ARTERY DISEASE
     Route: 048
     Dates: start: 2014, end: 20170203
  6. TORASEMIDE [Concomitant]
     Active Substance: TORSEMIDE
     Indication: CORONARY ARTERY DISEASE
     Route: 030
     Dates: start: 20170203, end: 20170208
  7. TORASEMIDE [Concomitant]
     Active Substance: TORSEMIDE
     Indication: HYPERTENSION
     Route: 048
     Dates: start: 20170218, end: 20170620
  8. TORASEMIDE [Concomitant]
     Active Substance: TORSEMIDE
     Indication: CORONARY ARTERY DISEASE
     Route: 041
     Dates: start: 20170615, end: 20170620
  9. TORASEMIDE [Concomitant]
     Active Substance: TORSEMIDE
     Indication: HYPERTENSION
     Route: 041
     Dates: start: 20170615, end: 20170620
  10. CLOPIDOGREL [Concomitant]
     Active Substance: CLOPIDOGREL BISULFATE
     Indication: CORONARY ARTERY DISEASE
     Route: 048
     Dates: start: 20170307
  11. COENZYME Q10 AND SODIUM CHLORIDE [Concomitant]
     Indication: CORONARY ARTERY DISEASE
     Route: 041
     Dates: start: 20161027, end: 20161103
  12. COENZYME Q10 AND SODIUM CHLORIDE [Concomitant]
     Indication: PNEUMONIA
     Route: 041
     Dates: start: 20170202, end: 20170202
  13. COENZYME Q10 AND SODIUM CHLORIDE [Concomitant]
     Indication: CHEST DISCOMFORT
     Route: 041
     Dates: start: 20170607, end: 20170607
  14. COENZYME Q10 AND SODIUM CHLORIDE [Concomitant]
     Indication: CHEST DISCOMFORT
     Route: 041
     Dates: start: 20170628, end: 20170628
  15. COENZYME Q10 AND SODIUM CHLORIDE [Concomitant]
     Indication: PNEUMONIA
     Route: 041
     Dates: start: 20170628, end: 20170628
  16. COENZYME Q10 AND SODIUM CHLORIDE [Concomitant]
     Indication: CORONARY ARTERY DISEASE
     Route: 041
     Dates: start: 20170827, end: 20170827
  17. VINPOCETINE [Concomitant]
     Active Substance: VINPOCETINE
     Indication: CORONARY ARTERY DISEASE
     Route: 041
     Dates: start: 20170208, end: 20170214
  18. VINPOCETINE [Concomitant]
     Active Substance: VINPOCETINE
     Indication: DIZZINESS
     Route: 041
     Dates: start: 20170628, end: 20170706
  19. POTASSIUM CHLORIDE. [Concomitant]
     Active Substance: POTASSIUM CHLORIDE
     Indication: ANGINA PECTORIS
     Route: 048
     Dates: start: 20161203, end: 20161212
  20. POTASSIUM CHLORIDE. [Concomitant]
     Active Substance: POTASSIUM CHLORIDE
     Indication: CORONARY ARTERY DISEASE
     Route: 048
     Dates: start: 20170203, end: 20170214
  21. POTASSIUM CHLORIDE. [Concomitant]
     Active Substance: POTASSIUM CHLORIDE
     Indication: ANGINA PECTORIS
     Dates: start: 20170207, end: 20170207
  22. CINNARIZINE CAPSULES FLUORIDE [Concomitant]
     Indication: DIZZINESS
     Route: 048
     Dates: start: 20170616, end: 20170620
  23. GLICLAZIDE [Concomitant]
     Active Substance: GLICLAZIDE
     Indication: DIABETES MELLITUS
     Route: 048
     Dates: start: 20170615, end: 20170822
  24. ISOSORBIDE MONONITRATE. [Concomitant]
     Active Substance: ISOSORBIDE MONONITRATE
     Indication: CORONARY ARTERY DISEASE
     Route: 048
     Dates: start: 20170615, end: 20170814
  25. CILOSTAZOL. [Concomitant]
     Active Substance: CILOSTAZOL
     Indication: HYPERTENSION
     Route: 048
     Dates: start: 201502, end: 20160816
  26. SPIRONOLACTONE. [Concomitant]
     Active Substance: SPIRONOLACTONE
     Indication: CORONARY ARTERY DISEASE
     Route: 048
     Dates: start: 20170203, end: 20170208
  27. NIFEDIPINE. [Concomitant]
     Active Substance: NIFEDIPINE
     Indication: HYPERTENSION
     Route: 048
     Dates: start: 20161031, end: 20161121
  28. CLOPIDOGREL [Concomitant]
     Active Substance: CLOPIDOGREL BISULFATE
     Indication: CORONARY ARTERY DISEASE
     Route: 048
     Dates: start: 20161128, end: 20161203
  29. COENZYME Q10 AND SODIUM CHLORIDE [Concomitant]
     Indication: PNEUMONIA
     Route: 041
     Dates: start: 20161027, end: 20161103
  30. LEVOCARNITINE. [Concomitant]
     Active Substance: LEVOCARNITINE
     Indication: CORONARY ARTERY DISEASE
     Route: 041
     Dates: start: 20170628, end: 20170706
  31. VINPOCETINE [Concomitant]
     Active Substance: VINPOCETINE
     Indication: DIZZINESS
     Route: 041
     Dates: start: 20170208, end: 20170214
  32. VINPOCETINE [Concomitant]
     Active Substance: VINPOCETINE
     Indication: DIZZINESS
     Route: 041
     Dates: start: 20170330, end: 20170410
  33. POTASSIUM MAGNESIUM ASPARTATE [Concomitant]
     Active Substance: MAGNESIUM ASPARTATE\POTASSIUM ASPARTATE
     Indication: CORONARY ARTERY DISEASE
     Route: 041
     Dates: start: 20170615, end: 20170615
  34. POTASSIUM CHLORIDE. [Concomitant]
     Active Substance: POTASSIUM CHLORIDE
     Indication: CORONARY ARTERY DISEASE
     Route: 041
     Dates: start: 20170208, end: 20170214
  35. POTASSIUM CHLORIDE. [Concomitant]
     Active Substance: POTASSIUM CHLORIDE
     Indication: CORONARY ARTERY DISEASE
     Dosage: 2 G, FRACTIONATED AFTER DILUTION
     Route: 048
     Dates: start: 20170405, end: 20170405
  36. POTASSIUM CHLORIDE. [Concomitant]
     Active Substance: POTASSIUM CHLORIDE
     Indication: ANGINA PECTORIS
     Route: 048
     Dates: start: 20170406, end: 20170406
  37. POTASSIUM CHLORIDE. [Concomitant]
     Active Substance: POTASSIUM CHLORIDE
     Indication: ANGINA PECTORIS
     Route: 041
     Dates: start: 20170607, end: 20170607
  38. BISACODYL. [Concomitant]
     Active Substance: BISACODYL
     Indication: CONSTIPATION
     Route: 048
     Dates: start: 20170815, end: 20170822
  39. EPANOVA [Suspect]
     Active Substance: OMEGA-3-CARBOXYLIC ACIDS
     Indication: HYPERTRIGLYCERIDAEMIA
     Route: 048
     Dates: start: 20180918
  40. BENAZEPRIL [Concomitant]
     Active Substance: BENAZEPRIL HYDROCHLORIDE
     Indication: HYPERTENSION
     Route: 048
     Dates: start: 20170206, end: 20170208
  41. TORASEMIDE [Concomitant]
     Active Substance: TORSEMIDE
     Indication: HYPERTENSION
     Route: 048
     Dates: start: 20170620, end: 20170628
  42. COENZYME Q10 AND SODIUM CHLORIDE [Concomitant]
     Indication: PNEUMONIA
     Route: 041
     Dates: start: 20161203, end: 20161212
  43. COENZYME Q10 AND SODIUM CHLORIDE [Concomitant]
     Indication: CHEST DISCOMFORT
     Route: 041
     Dates: start: 20170129, end: 20170129
  44. COENZYME Q10 AND SODIUM CHLORIDE [Concomitant]
     Indication: PNEUMONIA
     Route: 041
     Dates: start: 20170219, end: 20170219
  45. COENZYME Q10 AND SODIUM CHLORIDE [Concomitant]
     Indication: CHEST DISCOMFORT
     Route: 041
     Dates: start: 20170615, end: 20170620
  46. LEVOCARNITINE. [Concomitant]
     Active Substance: LEVOCARNITINE
     Indication: CORONARY ARTERY DISEASE
     Route: 041
     Dates: start: 20161027, end: 20161103
  47. LEVOCARNITINE. [Concomitant]
     Active Substance: LEVOCARNITINE
     Indication: CORONARY ARTERY DISEASE
     Route: 041
     Dates: start: 20170615, end: 20170620
  48. VINPOCETINE [Concomitant]
     Active Substance: VINPOCETINE
     Indication: DIZZINESS
     Route: 041
     Dates: start: 20170516, end: 20170524
  49. VINPOCETINE [Concomitant]
     Active Substance: VINPOCETINE
     Indication: CORONARY ARTERY DISEASE
     Route: 041
     Dates: start: 20170615, end: 20170620
  50. VINPOCETINE [Concomitant]
     Active Substance: VINPOCETINE
     Indication: DIZZINESS
     Route: 041
     Dates: start: 20170615, end: 20170620
  51. VINPOCETINE [Concomitant]
     Active Substance: VINPOCETINE
     Indication: CORONARY ARTERY DISEASE
     Route: 041
     Dates: start: 20170831, end: 20170831
  52. POTASSIUM CHLORIDE. [Concomitant]
     Active Substance: POTASSIUM CHLORIDE
     Indication: ANGINA PECTORIS
     Route: 048
     Dates: start: 20170203, end: 20170214
  53. BISACODYL. [Concomitant]
     Active Substance: BISACODYL
     Indication: CONSTIPATION
     Route: 048
     Dates: start: 20170206, end: 20170214
  54. ISOSORBIDE MONONITRATE. [Concomitant]
     Active Substance: ISOSORBIDE MONONITRATE
     Indication: CORONARY ARTERY DISEASE
     Route: 041
     Dates: start: 20161203, end: 20161211
  55. ISOSORBIDE MONONITRATE. [Concomitant]
     Active Substance: ISOSORBIDE MONONITRATE
     Indication: CORONARY ARTERY DISEASE
     Route: 048
     Dates: start: 20170516, end: 20170524
  56. TORASEMIDE [Concomitant]
     Active Substance: TORSEMIDE
     Indication: CORONARY ARTERY DISEASE
     Route: 041
     Dates: start: 20161121, end: 20161125
  57. TORASEMIDE [Concomitant]
     Active Substance: TORSEMIDE
     Indication: HYPERTENSION
     Route: 041
     Dates: start: 20161121, end: 20161125
  58. TORASEMIDE [Concomitant]
     Active Substance: TORSEMIDE
     Indication: CORONARY ARTERY DISEASE
     Route: 030
     Dates: start: 20161203, end: 20161212
  59. COENZYME Q10 AND SODIUM CHLORIDE [Concomitant]
     Indication: CORONARY ARTERY DISEASE
     Route: 041
     Dates: start: 20170202, end: 20170202
  60. COENZYME Q10 AND SODIUM CHLORIDE [Concomitant]
     Indication: CORONARY ARTERY DISEASE
     Route: 041
     Dates: start: 20170219, end: 20170219
  61. COENZYME Q10 AND SODIUM CHLORIDE [Concomitant]
     Indication: CHEST DISCOMFORT
     Route: 041
     Dates: start: 20170219, end: 20170219
  62. COENZYME Q10 AND SODIUM CHLORIDE [Concomitant]
     Indication: CORONARY ARTERY DISEASE
     Route: 041
     Dates: start: 20170607, end: 20170607
  63. COENZYME Q10 AND SODIUM CHLORIDE [Concomitant]
     Indication: CORONARY ARTERY DISEASE
     Route: 041
     Dates: start: 20170628, end: 20170628
  64. COENZYME Q10 AND SODIUM CHLORIDE [Concomitant]
     Indication: CORONARY ARTERY DISEASE
     Route: 041
     Dates: start: 20170815, end: 20170822
  65. VINPOCETINE [Concomitant]
     Active Substance: VINPOCETINE
     Indication: DIZZINESS
     Route: 041
     Dates: start: 20161125, end: 20161201
  66. POTASSIUM CHLORIDE. [Concomitant]
     Active Substance: POTASSIUM CHLORIDE
     Indication: CORONARY ARTERY DISEASE
     Route: 048
     Dates: start: 20161203, end: 20161212
  67. POTASSIUM CHLORIDE. [Concomitant]
     Active Substance: POTASSIUM CHLORIDE
     Indication: ANGINA PECTORIS
     Route: 041
     Dates: start: 20170208, end: 20170214
  68. TORASEMIDE [Concomitant]
     Active Substance: TORSEMIDE
     Indication: HYPERTENSION
     Route: 048
     Dates: start: 2014, end: 20170203
  69. TORASEMIDE [Concomitant]
     Active Substance: TORSEMIDE
     Indication: HYPERTENSION
     Route: 048
     Dates: start: 20170628
  70. EPANOVA [Suspect]
     Active Substance: OMEGA-3-CARBOXYLIC ACIDS
     Indication: HYPERTRIGLYCERIDAEMIA
     Route: 048
     Dates: start: 20160927, end: 20180719
  71. ISOSORBIDE MONONITRATE. [Concomitant]
     Active Substance: ISOSORBIDE MONONITRATE
     Indication: CORONARY ARTERY DISEASE
     Route: 048
     Dates: start: 20170815, end: 20170822
  72. SPIRONOLACTONE. [Concomitant]
     Active Substance: SPIRONOLACTONE
     Indication: CORONARY ARTERY DISEASE
     Route: 048
     Dates: start: 2014, end: 20170203
  73. SPIRONOLACTONE. [Concomitant]
     Active Substance: SPIRONOLACTONE
     Indication: CORONARY ARTERY DISEASE
     Route: 048
     Dates: start: 20170208
  74. NIFEDIPINE. [Concomitant]
     Active Substance: NIFEDIPINE
     Indication: HYPERTENSION
     Route: 048
     Dates: start: 20161121, end: 20161203
  75. TORASEMIDE [Concomitant]
     Active Substance: TORSEMIDE
     Indication: HYPERTENSION
     Route: 030
     Dates: start: 20170203, end: 20170208
  76. TORASEMIDE [Concomitant]
     Active Substance: TORSEMIDE
     Indication: CORONARY ARTERY DISEASE
     Route: 048
     Dates: start: 20170620, end: 20170628
  77. COENZYME Q10 AND SODIUM CHLORIDE [Concomitant]
     Indication: CORONARY ARTERY DISEASE
     Route: 041
     Dates: start: 20161203, end: 20161212
  78. COENZYME Q10 AND SODIUM CHLORIDE [Concomitant]
     Indication: CORONARY ARTERY DISEASE
     Route: 041
     Dates: start: 20170129, end: 20170129
  79. COENZYME Q10 AND SODIUM CHLORIDE [Concomitant]
     Indication: CORONARY ARTERY DISEASE
     Route: 041
     Dates: start: 20170330, end: 20170410
  80. COENZYME Q10 AND SODIUM CHLORIDE [Concomitant]
     Indication: PNEUMONIA
     Route: 041
     Dates: start: 20170330, end: 20170410
  81. COENZYME Q10 AND SODIUM CHLORIDE [Concomitant]
     Indication: PNEUMONIA
     Route: 041
     Dates: start: 20170615, end: 20170620
  82. COENZYME Q10 AND SODIUM CHLORIDE [Concomitant]
     Indication: CHEST DISCOMFORT
     Route: 041
     Dates: start: 20170815, end: 20170822
  83. COENZYME Q10 AND SODIUM CHLORIDE [Concomitant]
     Indication: PNEUMONIA
     Route: 041
     Dates: start: 20170815, end: 20170822
  84. VINPOCETINE [Concomitant]
     Active Substance: VINPOCETINE
     Indication: DIZZINESS
     Route: 041
     Dates: start: 20161203, end: 20161212
  85. VINPOCETINE [Concomitant]
     Active Substance: VINPOCETINE
     Indication: CORONARY ARTERY DISEASE
     Route: 048
     Dates: start: 20170417, end: 20170428
  86. POTASSIUM CHLORIDE. [Concomitant]
     Active Substance: POTASSIUM CHLORIDE
     Indication: ANGINA PECTORIS
     Dosage: 2 G, FRACTIONATED AFTER DILUTION
     Route: 048
     Dates: start: 20170405, end: 20170405
  87. POTASSIUM CHLORIDE. [Concomitant]
     Active Substance: POTASSIUM CHLORIDE
     Indication: ANGINA PECTORIS
     Route: 048
     Dates: start: 20170406, end: 20170410
  88. EPANOVA [Suspect]
     Active Substance: OMEGA-3-CARBOXYLIC ACIDS
     Indication: HYPERTRIGLYCERIDAEMIA
     Route: 048
     Dates: start: 20180818, end: 20180827
  89. NIFEDIPINE. [Concomitant]
     Active Substance: NIFEDIPINE
     Indication: HYPERTENSION
     Route: 048
     Dates: start: 20161203, end: 20161205
  90. NIFEDIPINE. [Concomitant]
     Active Substance: NIFEDIPINE
     Indication: HYPERTENSION
     Route: 048
     Dates: start: 20170218
  91. TORASEMIDE [Concomitant]
     Active Substance: TORSEMIDE
     Indication: HYPERTENSION
     Route: 048
     Dates: start: 2014, end: 20170203
  92. CLOPIDOGREL [Concomitant]
     Active Substance: CLOPIDOGREL BISULFATE
     Indication: CORONARY ARTERY DISEASE
     Route: 048
     Dates: start: 20161121, end: 20161128
  93. COENZYME Q10 AND SODIUM CHLORIDE [Concomitant]
     Indication: CHEST DISCOMFORT
     Route: 041
     Dates: start: 20161121, end: 20161201
  94. COENZYME Q10 AND SODIUM CHLORIDE [Concomitant]
     Indication: PNEUMONIA
     Route: 041
     Dates: start: 20170129, end: 20170129
  95. COENZYME Q10 AND SODIUM CHLORIDE [Concomitant]
     Indication: CHEST DISCOMFORT
     Route: 041
     Dates: start: 20170202, end: 20170202
  96. COENZYME Q10 AND SODIUM CHLORIDE [Concomitant]
     Indication: PNEUMONIA
     Route: 041
     Dates: start: 20170516, end: 20170524
  97. COENZYME Q10 AND SODIUM CHLORIDE [Concomitant]
     Indication: CORONARY ARTERY DISEASE
     Route: 041
     Dates: start: 20170615, end: 20170620
  98. COENZYME Q10 AND SODIUM CHLORIDE [Concomitant]
     Indication: CHEST DISCOMFORT
     Route: 041
     Dates: start: 20170827, end: 20170827
  99. LEVOCARNITINE. [Concomitant]
     Active Substance: LEVOCARNITINE
     Indication: CORONARY ARTERY DISEASE
     Route: 041
     Dates: start: 20161203, end: 20161212
  100. VINPOCETINE [Concomitant]
     Active Substance: VINPOCETINE
     Indication: CORONARY ARTERY DISEASE
     Route: 041
     Dates: start: 20161203, end: 20161212
  101. VINPOCETINE [Concomitant]
     Active Substance: VINPOCETINE
     Indication: DIZZINESS
     Route: 048
     Dates: start: 20170417, end: 20170428
  102. VINPOCETINE [Concomitant]
     Active Substance: VINPOCETINE
     Indication: CORONARY ARTERY DISEASE
     Route: 041
     Dates: start: 20170817, end: 20170822
  103. VINPOCETINE [Concomitant]
     Active Substance: VINPOCETINE
     Indication: DIZZINESS
     Route: 041
     Dates: start: 20170817, end: 20170822
  104. POTASSIUM CHLORIDE. [Concomitant]
     Active Substance: POTASSIUM CHLORIDE
     Indication: CORONARY ARTERY DISEASE
     Dates: start: 20170207, end: 20170207
  105. POTASSIUM CHLORIDE. [Concomitant]
     Active Substance: POTASSIUM CHLORIDE
     Indication: CORONARY ARTERY DISEASE
     Route: 048
     Dates: start: 20170406, end: 20170406
  106. POTASSIUM CHLORIDE. [Concomitant]
     Active Substance: POTASSIUM CHLORIDE
     Indication: CORONARY ARTERY DISEASE
     Dosage: 40 ML, FRACTIONATED AFTER DILUTION
     Route: 048
     Dates: start: 20170820, end: 20170820
  107. GLICLAZIDE [Concomitant]
     Active Substance: GLICLAZIDE
     Indication: DIABETES MELLITUS
     Route: 048
     Dates: start: 20161216, end: 20170614
  108. TORASEMIDE [Concomitant]
     Active Substance: TORSEMIDE
     Indication: HYPERTENSION
     Route: 048
     Dates: start: 20170620, end: 20170628
  109. ISOSORBIDE MONONITRATE. [Concomitant]
     Active Substance: ISOSORBIDE MONONITRATE
     Indication: CORONARY ARTERY DISEASE
     Route: 048
     Dates: start: 2014
  110. BENAZEPRIL [Concomitant]
     Active Substance: BENAZEPRIL HYDROCHLORIDE
     Indication: HYPERTENSION
     Route: 048
     Dates: start: 20170214
  111. NIFEDIPINE. [Concomitant]
     Active Substance: NIFEDIPINE
     Indication: HYPERTENSION
     Route: 048
     Dates: start: 20161027, end: 20161030
  112. TORASEMIDE [Concomitant]
     Active Substance: TORSEMIDE
     Indication: HYPERTENSION
     Route: 030
     Dates: start: 20161203, end: 20161212
  113. TORASEMIDE [Concomitant]
     Active Substance: TORSEMIDE
     Indication: CORONARY ARTERY DISEASE
     Route: 048
     Dates: start: 20170218, end: 20170620
  114. TORASEMIDE [Concomitant]
     Active Substance: TORSEMIDE
     Indication: CORONARY ARTERY DISEASE
     Route: 048
     Dates: start: 20170628
  115. COENZYME Q10 AND SODIUM CHLORIDE [Concomitant]
     Indication: CHEST DISCOMFORT
     Route: 041
     Dates: start: 20161027, end: 20161103
  116. COENZYME Q10 AND SODIUM CHLORIDE [Concomitant]
     Indication: CORONARY ARTERY DISEASE
     Route: 041
     Dates: start: 20161121, end: 20161201
  117. COENZYME Q10 AND SODIUM CHLORIDE [Concomitant]
     Indication: CHEST DISCOMFORT
     Route: 041
     Dates: start: 20161203, end: 20161212
  118. COENZYME Q10 AND SODIUM CHLORIDE [Concomitant]
     Indication: CHEST DISCOMFORT
     Route: 041
     Dates: start: 20170516, end: 20170524
  119. COENZYME Q10 AND SODIUM CHLORIDE [Concomitant]
     Indication: PNEUMONIA
     Route: 041
     Dates: start: 20170827, end: 20170827
  120. LEVOCARNITINE. [Concomitant]
     Active Substance: LEVOCARNITINE
     Indication: CORONARY ARTERY DISEASE
     Route: 041
     Dates: start: 20161121, end: 20161201
  121. VINPOCETINE [Concomitant]
     Active Substance: VINPOCETINE
     Indication: CORONARY ARTERY DISEASE
     Route: 041
     Dates: start: 20170330, end: 20170410
  122. VINPOCETINE [Concomitant]
     Active Substance: VINPOCETINE
     Indication: CORONARY ARTERY DISEASE
     Route: 041
     Dates: start: 20170628, end: 20170706
  123. VINPOCETINE [Concomitant]
     Active Substance: VINPOCETINE
     Indication: DIZZINESS
     Route: 041
     Dates: start: 20170831, end: 20170831
  124. POTASSIUM MAGNESIUM ASPARTATE [Concomitant]
     Active Substance: MAGNESIUM ASPARTATE\POTASSIUM ASPARTATE
     Indication: CORONARY ARTERY DISEASE
     Route: 041
     Dates: start: 20170516, end: 20170524
  125. POTASSIUM CHLORIDE. [Concomitant]
     Active Substance: POTASSIUM CHLORIDE
     Indication: CORONARY ARTERY DISEASE
     Route: 048
     Dates: start: 20170406, end: 20170410
  126. POTASSIUM CHLORIDE. [Concomitant]
     Active Substance: POTASSIUM CHLORIDE
     Indication: CORONARY ARTERY DISEASE
     Route: 041
     Dates: start: 20170607, end: 20170607
  127. POTASSIUM CHLORIDE. [Concomitant]
     Active Substance: POTASSIUM CHLORIDE
     Indication: CORONARY ARTERY DISEASE
     Route: 048
     Dates: start: 20170615, end: 20170620
  128. POTASSIUM CHLORIDE. [Concomitant]
     Active Substance: POTASSIUM CHLORIDE
     Indication: ANGINA PECTORIS
     Route: 048
     Dates: start: 20170615, end: 20170620
  129. BISACODYL. [Concomitant]
     Active Substance: BISACODYL
     Indication: CONSTIPATION
     Route: 048
     Dates: start: 20170615, end: 20170620
  130. GLICLAZIDE [Concomitant]
     Active Substance: GLICLAZIDE
     Indication: DIABETES MELLITUS
     Route: 048
     Dates: start: 20170823
  131. TRIMETAZIDINE DIHYDROCHLORIDE [Concomitant]
     Active Substance: TRIMETAZIDINE DIHYDROCHLORIDE
     Indication: CORONARY ARTERY DISEASE
     Route: 048
     Dates: start: 2014
  132. ALLOPURINOL. [Concomitant]
     Active Substance: ALLOPURINOL
     Indication: GOUT
     Route: 048
     Dates: start: 2015
  133. TORASEMIDE [Concomitant]
     Active Substance: TORSEMIDE
     Indication: HYPERTENSION
     Route: 048
     Dates: start: 20170628
  134. COENZYME Q10 AND SODIUM CHLORIDE [Concomitant]
     Indication: PNEUMONIA
     Route: 041
     Dates: start: 20161121, end: 20161201
  135. COENZYME Q10 AND SODIUM CHLORIDE [Concomitant]
     Indication: CHEST DISCOMFORT
     Route: 041
     Dates: start: 20170330, end: 20170410
  136. COENZYME Q10 AND SODIUM CHLORIDE [Concomitant]
     Indication: CORONARY ARTERY DISEASE
     Route: 041
     Dates: start: 20170516, end: 20170524
  137. COENZYME Q10 AND SODIUM CHLORIDE [Concomitant]
     Indication: PNEUMONIA
     Route: 041
     Dates: start: 20170607, end: 20170607
  138. VINPOCETINE [Concomitant]
     Active Substance: VINPOCETINE
     Indication: CORONARY ARTERY DISEASE
     Route: 041
     Dates: start: 20161125, end: 20161201
  139. VINPOCETINE [Concomitant]
     Active Substance: VINPOCETINE
     Indication: CORONARY ARTERY DISEASE
     Route: 041
     Dates: start: 20170516, end: 20170524
  140. POTASSIUM MAGNESIUM ASPARTATE [Concomitant]
     Active Substance: MAGNESIUM ASPARTATE\POTASSIUM ASPARTATE
     Indication: CORONARY ARTERY DISEASE
     Route: 041
     Dates: start: 20170330, end: 20170410
  141. POTASSIUM CHLORIDE. [Concomitant]
     Active Substance: POTASSIUM CHLORIDE
     Indication: ANGINA PECTORIS
     Dosage: 40 ML, FRACTIONATED AFTER DILUTION
     Route: 048
     Dates: start: 20170820, end: 20170820

REACTIONS (1)
  - Angina unstable [Recovered/Resolved]

NARRATIVE: CASE EVENT DATE: 20170628
